FAERS Safety Report 12906871 (Version 1)
Quarter: 2016Q4

REPORT INFORMATION
  Report Type: Spontaneous
  Country: CA (occurrence: CA)
  Receive Date: 20161103
  Receipt Date: 20161103
  Transmission Date: 20170207
  Serious: Yes (Hospitalization, Other)
  Sender: FDA-Public Use
  Company Number: CA-PFIZER INC-2016498831

PATIENT
  Age: 69 Year
  Sex: Female

DRUGS (13)
  1. SUNITINIB MALATE. [Suspect]
     Active Substance: SUNITINIB MALATE
     Indication: RENAL CANCER
     Dosage: 50 MG, CYCLIC: 4 WEEKS ON AND 2 WEEKS OFF
     Dates: start: 201001
  2. SUNITINIB MALATE. [Suspect]
     Active Substance: SUNITINIB MALATE
     Dosage: 25 MG, CYCLIC: 2 WEEKS ON AND 1 WEEK OFF
     Dates: start: 2016, end: 2016
  3. SUNITINIB MALATE. [Suspect]
     Active Substance: SUNITINIB MALATE
     Dosage: THIRD CYCLE 25MG PER DAY (2 WEEKS ON AND 1 WEEK OFF).
  4. SUNITINIB MALATE. [Suspect]
     Active Substance: SUNITINIB MALATE
     Dosage: SUNITINIB BRAKE FOR A TRIP OUTSIDE CANADA
     Dates: start: 20160510, end: 20160610
  5. SUNITINIB MALATE. [Suspect]
     Active Substance: SUNITINIB MALATE
     Dosage: 25 MG, CYCLIC: 5 DAYS ON AND 3 DAYS OFF
     Dates: start: 201503, end: 201503
  6. SUNITINIB MALATE. [Suspect]
     Active Substance: SUNITINIB MALATE
     Dosage: 37.5/25 MG, CYCLIC: 1 WEEK ON 1 WEEK OFF
     Dates: start: 201512, end: 201601
  7. SUNITINIB MALATE. [Suspect]
     Active Substance: SUNITINIB MALATE
     Dosage: 37.5 MG, CYCLIC: 2 WEEKS ON AND 1 WEEK OFF
     Dates: start: 201606, end: 201606
  8. SUNITINIB MALATE. [Suspect]
     Active Substance: SUNITINIB MALATE
     Dosage: III CYCLE: 25 MG, CYCLIC: 2 WEEKS ON AND 1 WEEK OFF
     Dates: start: 2010, end: 201501
  9. SUNITINIB MALATE. [Suspect]
     Active Substance: SUNITINIB MALATE
     Dosage: 37.5 MG, CYCLIC: 1 WEEK ON AND 1 WEEK OFF
     Dates: start: 201601, end: 20160509
  10. SUNITINIB MALATE. [Suspect]
     Active Substance: SUNITINIB MALATE
     Dosage: 25 MG, CYCLIC: 1 WEEK ON, 1 WEEK OFF
     Dates: start: 2016
  11. SUNITINIB MALATE. [Suspect]
     Active Substance: SUNITINIB MALATE
     Dosage: 25 MG, CYCLIC 10 DAYS ON AND 5 OFF
     Dates: start: 201501
  12. SUNITINIB MALATE. [Suspect]
     Active Substance: SUNITINIB MALATE
     Dosage: 25 MG, CYCLIC 1 WEEK ON AND 1 WEEK OFF
     Dates: start: 201505, end: 201511
  13. SUNITINIB MALATE. [Suspect]
     Active Substance: SUNITINIB MALATE
     Dosage: 37.5 MG, CYCLIC: 1 WEEK OFF ON, 1 WEEK OFF
     Dates: start: 201606, end: 2016

REACTIONS (11)
  - Thrombocytopenia [Unknown]
  - Epistaxis [Unknown]
  - Malignant hypertension [Recovered/Resolved]
  - Mucosal inflammation [Unknown]
  - Palmar-plantar erythrodysaesthesia syndrome [Unknown]
  - Oedema [Unknown]
  - Neutropenia [Unknown]
  - Neoplasm progression [Unknown]
  - Vision blurred [Unknown]
  - Headache [Unknown]
  - Diarrhoea [Unknown]

NARRATIVE: CASE EVENT DATE: 2010
